FAERS Safety Report 11317487 (Version 1)
Quarter: 2015Q3

REPORT INFORMATION
  Report Type: Spontaneous
  Country: US (occurrence: None)
  Receive Date: 20150727
  Receipt Date: 20150727
  Transmission Date: 20151125
  Serious: No
  Sender: FDA-Public Use
  Company Number: None

PATIENT
  Age: 52 Year
  Sex: Female

DRUGS (22)
  1. PROTONIX [Concomitant]
     Active Substance: PANTOPRAZOLE SODIUM
  2. SIMBRINZA [Concomitant]
     Active Substance: BRIMONIDINE TARTRATE\BRINZOLAMIDE
  3. SUDAFED [Concomitant]
     Active Substance: PSEUDOEPHEDRINE HYDROCHLORIDE
  4. ALEVE [Concomitant]
     Active Substance: NAPROXEN SODIUM
  5. FML FOATE ? [Concomitant]
  6. ZYRTEC [Concomitant]
     Active Substance: CETIRIZINE HYDROCHLORIDE
  7. PROPRANOLOL [Concomitant]
     Active Substance: PROPRANOLOL\PROPRANOLOL HYDROCHLORIDE
  8. LACTULOSE. [Concomitant]
     Active Substance: LACTULOSE
  9. SYNTHROID [Concomitant]
     Active Substance: LEVOTHYROXINE SODIUM
  10. LOPERAMIDE [Concomitant]
     Active Substance: LOPERAMIDE
  11. NYSTATIN. [Concomitant]
     Active Substance: NYSTATIN
  12. MULTI [Concomitant]
  13. RESTASIS [Concomitant]
     Active Substance: CYCLOSPORINE
  14. AFINITOR [Suspect]
     Active Substance: EVEROLIMUS
     Indication: BREAST CANCER
     Route: 048
     Dates: start: 20150429, end: 20150623
  15. XALATAN [Concomitant]
     Active Substance: LATANOPROST
  16. PREMARIN [Concomitant]
     Active Substance: ESTROGENS, CONJUGATED
  17. POT CHLORIDE [Concomitant]
     Active Substance: POTASSIUM CHLORIDE
  18. LORAZEPAM. [Concomitant]
     Active Substance: LORAZEPAM
  19. PATADAY [Concomitant]
     Active Substance: OLOPATADINE HYDROCHLORIDE
  20. FENTANYL. [Concomitant]
     Active Substance: FENTANYL
  21. ONDANSETRON [Concomitant]
     Active Substance: ONDANSETRON
  22. VITAMIN E [Concomitant]
     Active Substance: .ALPHA.-TOCOPHEROL

REACTIONS (1)
  - Drug ineffective [None]

NARRATIVE: CASE EVENT DATE: 20150623
